FAERS Safety Report 21969840 (Version 3)
Quarter: 2023Q1

REPORT INFORMATION
  Report Type: Spontaneous
  Country: US (occurrence: US)
  Receive Date: 20230208
  Receipt Date: 20230317
  Transmission Date: 20230418
  Serious: No
  Sender: FDA-Public Use
  Company Number: US-BAUSCHBL-2023BNL000825

PATIENT
  Sex: Male

DRUGS (1)
  1. NEOMYCIN AND POLYMYXIN B SULFATES AND HYDROCORTISONE [Suspect]
     Active Substance: HYDROCORTISONE\NEOMYCIN SULFATE\POLYMYXIN B SULFATE
     Indication: Ear infection
     Dosage: OTHER
     Route: 065
     Dates: start: 20230130

REACTIONS (4)
  - Hypoacusis [Recovering/Resolving]
  - Ear discomfort [Unknown]
  - Instillation site pain [Unknown]
  - Wrong technique in product usage process [Unknown]

NARRATIVE: CASE EVENT DATE: 20230101
